FAERS Safety Report 4878547-3 (Version None)
Quarter: 2006Q1

REPORT INFORMATION
  Report Type: 
  Country: None (occurrence: None)
  Receive Date: 20060109
  Receipt Date: 20060109
  Transmission Date: 20060701
  Serious: Yes (Hospitalization)
  Sender: FDA-Public Use
  Company Number: None

PATIENT
  Age: 57 Year
  Sex: Male
  Weight: 121.3 kg

DRUGS (11)
  1. DOCETAXEL [Suspect]
     Indication: PROSTATE CANCER
     Dosage: 36 MG/M2, D1, 8, IV
     Route: 042
     Dates: start: 20050630, end: 20051219
  2. CAPECITABINE [Suspect]
     Indication: PROSTATE CANCER
     Dosage: 1250 MG/M2,  D5-18, PO
     Route: 048
     Dates: start: 20050704, end: 20051222
  3. COUMADIN [Concomitant]
  4. DECADRON [Concomitant]
  5. CIALIS [Concomitant]
  6. LOPRESSOR [Concomitant]
  7. ALLEGRA [Concomitant]
  8. CALCITRIOL [Concomitant]
  9. CALCIUM CARBONATE [Concomitant]
  10. LASIX [Concomitant]
  11. VITAMIN D [Concomitant]

REACTIONS (11)
  - CELLULITIS [None]
  - EAR PAIN [None]
  - ENTEROCOCCAL INFECTION [None]
  - ERYTHEMA [None]
  - EXTERNAL EAR DISORDER [None]
  - HAEMATOCRIT DECREASED [None]
  - HAEMOGLOBIN DECREASED [None]
  - PAIN [None]
  - PAIN IN JAW [None]
  - SUBCUTANEOUS ABSCESS [None]
  - SWELLING [None]
